FAERS Safety Report 15641700 (Version 1)
Quarter: 2018Q4

REPORT INFORMATION
  Report Type: Spontaneous
  Country: US (occurrence: US)
  Receive Date: 20181121
  Receipt Date: 20181121
  Transmission Date: 20190205
  Serious: No
  Sender: FDA-Public Use
  Company Number: US-ACCORD-072772

PATIENT
  Sex: Female

DRUGS (1)
  1. HYDROCHLOROTHIAZIDE ACCORD [Suspect]
     Active Substance: HYDROCHLOROTHIAZIDE
     Indication: HYPERTENSION
     Dosage: STRENGTH: 25 MG?DOSE: 25 MG ONCE A DAY
     Route: 048

REACTIONS (3)
  - Dizziness [Recovering/Resolving]
  - Dysstasia [Not Recovered/Not Resolved]
  - Vertigo [Not Recovered/Not Resolved]
